FAERS Safety Report 14764607 (Version 2)
Quarter: 2018Q2

REPORT INFORMATION
  Report Type: Report from Study
  Country: US (occurrence: US)
  Receive Date: 20180416
  Receipt Date: 20180511
  Transmission Date: 20180711
  Serious: No
  Sender: FDA-Public Use
  Company Number: US-GILEAD-2018-0332673

PATIENT
  Age: 33 Year
  Sex: Male

DRUGS (2)
  1. EMTRICITABINE/TENOFOVIR DISOPROXIL FUMARATE [Suspect]
     Active Substance: EMTRICITABINE\TENOFOVIR DISOPROXIL FUMARATE
     Indication: PROPHYLAXIS AGAINST HIV INFECTION
     Dosage: 300/200, QD
     Route: 048
     Dates: start: 20180406
  2. EMTRICITABINE/TENOFOVIR DISOPROXIL FUMARATE [Suspect]
     Active Substance: EMTRICITABINE\TENOFOVIR DISOPROXIL FUMARATE
     Dosage: 300/200, QD
     Route: 048
     Dates: start: 20180409

REACTIONS (1)
  - Rash generalised [Recovered/Resolved]

NARRATIVE: CASE EVENT DATE: 20180407
